FAERS Safety Report 7414918-9 (Version None)
Quarter: 2011Q2

REPORT INFORMATION
  Report Type: 
  Country: None (occurrence: None)
  Receive Date: 20110414
  Receipt Date: 20110225
  Transmission Date: 20111010
  Serious: Yes (Hospitalization, Other)
  Sender: FDA-Public Use
  Company Number: US-BAYER-201022459NA

PATIENT
  Age: 41 Year
  Sex: Female
  Weight: 111 kg

DRUGS (9)
  1. DIAZIDE [Concomitant]
     Dosage: UNK
     Dates: start: 20040517
  2. YASMIN [Suspect]
     Indication: MENSTRUATION IRREGULAR
     Dosage: UNK
     Dates: start: 20080301
  3. CHANTIX [Concomitant]
  4. DIOVAN HCT [Concomitant]
     Dosage: UNK UNK, QD
     Route: 048
     Dates: start: 20060915
  5. BENICAR HCT [Concomitant]
     Dosage: UNK UNK, QD
  6. YASMIN [Suspect]
     Indication: PREMENSTRUAL SYNDROME
     Dosage: UNK
     Dates: start: 20070101, end: 20080101
  7. WELLBUTRIN XL [Concomitant]
  8. YAZ [Suspect]
     Indication: MENSTRUATION IRREGULAR
  9. YAZ [Suspect]
     Indication: PREMENSTRUAL SYNDROME

REACTIONS (4)
  - OEDEMA PERIPHERAL [None]
  - CEREBROVASCULAR ACCIDENT [None]
  - INJURY [None]
  - DEEP VEIN THROMBOSIS [None]
